FAERS Safety Report 10179098 (Version 1)
Quarter: 2014Q2

REPORT INFORMATION
  Report Type: Spontaneous
  Country: US (occurrence: None)
  Receive Date: 20140516
  Receipt Date: 20140516
  Transmission Date: 20141212
  Serious: No
  Sender: FDA-Public Use
  Company Number: None

PATIENT
  Age: 65 Year
  Sex: Female
  Weight: 49.9 kg

DRUGS (12)
  1. DIATRIZOATE MEGLUMINE\DIATRIZOATE SODIUM [Suspect]
     Indication: COMPUTERISED TOMOGRAM
     Dosage: 2 BOTTLES?1-2 HRS BEFORE CT SCAN?1-1 HR, BEFORE?2 TIMES?12OZ WITH LIQUID
     Route: 048
     Dates: start: 20140430, end: 20140430
  2. ONE -A-DAY WOMEN^S 50+ MULTIVITAMIN/MULTIMINERAL SUPPLEMENT [Concomitant]
  3. LORAZEPAM [Concomitant]
  4. TRAMADOL [Concomitant]
  5. TRAZODONE [Concomitant]
  6. OLMESARTAN-HYDROCHLOROTHIAZIDE (BENICAR HCT) [Concomitant]
  7. ATORVASTATIN [Concomitant]
  8. SERTRALINE [Concomitant]
  9. BUPROPION XL [Concomitant]
  10. ATENOLOL [Concomitant]
  11. MELOXICAM (MOBIC) [Concomitant]
  12. ASPIRIN [Concomitant]

REACTIONS (4)
  - Dizziness [None]
  - Presyncope [None]
  - Diarrhoea [None]
  - Abdominal pain upper [None]
